FAERS Safety Report 12104485 (Version 7)
Quarter: 2016Q3

REPORT INFORMATION
  Report Type: Report from Study
  Country: JP (occurrence: JP)
  Receive Date: 20160223
  Receipt Date: 20160829
  Transmission Date: 20161109
  Serious: Yes (Other)
  Sender: FDA-Public Use
  Company Number: JP-PFIZER INC-2016104852

PATIENT
  Age: 32 Year
  Sex: Female
  Weight: 44 kg

DRUGS (3)
  1. SIROLIMUS. [Suspect]
     Active Substance: SIROLIMUS
     Indication: LYMPHANGIOLEIOMYOMATOSIS
     Dosage: 2 MG, 1X/DAY
     Route: 048
     Dates: start: 20150131, end: 20150209
  2. SIROLIMUS. [Suspect]
     Active Substance: SIROLIMUS
     Dosage: 3 MG, 1X/DAY
     Route: 048
     Dates: start: 20150210
  3. ULTIBRO [Concomitant]
     Active Substance: GLYCOPYRRONIUM\INDACATEROL
     Indication: LYMPHANGIOLEIOMYOMATOSIS
     Dosage: UNK
     Route: 055

REACTIONS (14)
  - Upper respiratory tract inflammation [Recovered/Resolved]
  - Pleural effusion [Not Recovered/Not Resolved]
  - Condition aggravated [Unknown]
  - Tonsillitis [Recovered/Resolved]
  - Constipation [Recovered/Resolved]
  - Hypercholesterolaemia [Recovered/Resolved]
  - Upper respiratory tract inflammation [Recovered/Resolved]
  - Oedema peripheral [Recovered/Resolved]
  - Hypertriglyceridaemia [Recovered/Resolved]
  - Stomatitis [Recovered/Resolved]
  - Eczema [Not Recovered/Not Resolved]
  - Ascites [Unknown]
  - Acne [Recovered/Resolved]
  - Epistaxis [Recovered/Resolved]

NARRATIVE: CASE EVENT DATE: 20150206
